FAERS Safety Report 21410744 (Version 1)
Quarter: 2022Q4

REPORT INFORMATION
  Report Type: Spontaneous
  Country: US (occurrence: None)
  Receive Date: 20221004
  Receipt Date: 20221004
  Transmission Date: 20230113
  Serious: Yes (Hospitalization)
  Sender: FDA-Public Use
  Company Number: None

PATIENT
  Age: 46 Year
  Sex: Male

DRUGS (1)
  1. ATORVASTATIN CALCIUM [Suspect]
     Active Substance: ATORVASTATIN CALCIUM
     Indication: Rhabdomyolysis
     Dosage: FREQUENCY : DAILY;?
     Route: 048
     Dates: start: 20220609, end: 20220624

REACTIONS (3)
  - Myalgia [None]
  - Hepatic enzyme increased [None]
  - Rhabdomyolysis [None]

NARRATIVE: CASE EVENT DATE: 20220623
